FAERS Safety Report 6583502-1 (Version None)
Quarter: 2010Q1

REPORT INFORMATION
  Report Type: 
  Country: None (occurrence: None)
  Receive Date: 20100216
  Receipt Date: 20100208
  Transmission Date: 20100710
  Serious: Yes (Death, Other)
  Sender: FDA-Public Use
  Company Number: PHHY2009DE52834

PATIENT
  Sex: Male
  Weight: 110 kg

DRUGS (5)
  1. DAFIRO [Suspect]
     Dosage: UNK
     Route: 048
     Dates: start: 20091123
  2. ICANDRA [Suspect]
     Dosage: 1-0-1
     Route: 048
     Dates: start: 20091123
  3. ASPIRIN [Concomitant]
  4. BELOC ZOK [Concomitant]
  5. TELMISARTAN [Concomitant]

REACTIONS (11)
  - ANEURYSM [None]
  - CARDIAC TAMPONADE [None]
  - CIRCULATORY COLLAPSE [None]
  - EMPHYSEMA [None]
  - HEPATIC CONGESTION [None]
  - PERICARDIAL HAEMORRHAGE [None]
  - PNEUMOTHORAX [None]
  - PULMONARY CONGESTION [None]
  - RENAL DISORDER [None]
  - RIB FRACTURE [None]
  - SPLEEN CONGESTION [None]
